FAERS Safety Report 7337383-9 (Version None)
Quarter: 2011Q1

REPORT INFORMATION
  Report Type: 
  Country: None (occurrence: None)
  Receive Date: 20110308
  Receipt Date: 20110308
  Transmission Date: 20110831
  Serious: Yes (Life-Threatening)
  Sender: FDA-Public Use
  Company Number: None

PATIENT
  Age: 8 Year
  Sex: Female
  Weight: 38.5557 kg

DRUGS (1)
  1. ALCOHOL PREP PAD 70% TRIAD [Suspect]
     Dates: start: 20110223, end: 20110224

REACTIONS (1)
  - PYREXIA [None]
